FAERS Safety Report 6098472-2 (Version None)
Quarter: 2009Q1

REPORT INFORMATION
  Report Type: 
  Country: None (occurrence: None)
  Receive Date: 20090302
  Receipt Date: 20090223
  Transmission Date: 20090719
  Serious: Yes (Death, Hospitalization)
  Sender: FDA-Public Use
  Company Number: RO-AMGEN-US336024

PATIENT
  Age: 66 Year
  Sex: Female

DRUGS (5)
  1. ENBREL [Suspect]
     Indication: RHEUMATOID ARTHRITIS
     Route: 058
     Dates: start: 20080101, end: 20081216
  2. FUROSEMIDE [Concomitant]
     Indication: LEFT VENTRICULAR FAILURE
     Route: 065
  3. SPIRONOLACTONE [Concomitant]
     Indication: LEFT VENTRICULAR FAILURE
     Route: 065
  4. METHOTREXATE [Concomitant]
     Indication: RHEUMATOID ARTHRITIS
     Route: 065
     Dates: start: 20080101
  5. METHOTREXATE [Concomitant]
     Dates: start: 20090113

REACTIONS (5)
  - MOUTH ULCERATION [None]
  - NEPHROTIC SYNDROME [None]
  - PANCYTOPENIA [None]
  - PULMONARY EMBOLISM [None]
  - RENAL FAILURE ACUTE [None]
